FAERS Safety Report 4320705-0 (Version None)
Quarter: 2004Q1

REPORT INFORMATION
  Report Type: 
  Country: None (occurrence: None)
  Receive Date: 20040318
  Receipt Date: 20040301
  Transmission Date: 20041129
  Serious: Yes (Life-Threatening, Hospitalization, Disabling)
  Sender: FDA-Public Use
  Company Number: F01200400011

PATIENT
  Age: 60 Year
  Sex: Female

DRUGS (4)
  1. OXALIPLATIN-SOLUTION-130 MG/M2 [Suspect]
     Indication: COLORECTAL CANCER METASTATIC
     Dosage: 204 MG Q3W INTRAVENOUS NOS
     Route: 042
     Dates: start: 20031218, end: 20031218
  2. CAPECITABINE-TABLET-1000 MG/M2 [Suspect]
     Dosage: 1000 MG/M2 TWICE DAILY FROM DAY 1 TO DAY 15, ORAL
     Route: 048
     Dates: start: 20031218, end: 20031228
  3. CAPECITABINE-TABLET-1000 MG/M2 [Suspect]
     Dosage: 1000 MG/M2 TWICE DAILY FROM DAY 1 TO DAY 15, ORAL
     Route: 048
  4. OMEPRAZOLE [Concomitant]

REACTIONS (3)
  - BRAIN OEDEMA [None]
  - CEREBRAL INFARCTION [None]
  - CEREBRAL ISCHAEMIA [None]
